FAERS Safety Report 7382374-5 (Version None)
Quarter: 2011Q1

REPORT INFORMATION
  Report Type: 
  Country: None (occurrence: None)
  Receive Date: 20110329
  Receipt Date: 20110302
  Transmission Date: 20110831
  Serious: Yes (Hospitalization)
  Sender: FDA-Public Use
  Company Number: US-BAYER-201024006NA

PATIENT
  Sex: Female
  Weight: 61.224 kg

DRUGS (11)
  1. YASMIN [Suspect]
     Indication: PRODUCT USED FOR UNKNOWN INDICATION
     Dosage: UNK UNK, UNK
     Route: 048
     Dates: start: 20071001, end: 20091215
  2. MOTRIN [Concomitant]
     Dosage: 800 MG, UNK
     Route: 048
  3. ALEVE [Concomitant]
  4. LEVBID [Concomitant]
     Dosage: 0375 MG, BID
     Route: 048
  5. PROTONIX [Concomitant]
     Dosage: 40 MG, UNK
     Route: 048
  6. CLARITIN [Concomitant]
     Dosage: 10 MG, UNK
     Route: 048
  7. LORTAB [Concomitant]
     Dosage: 75 MG, UNK
     Dates: start: 20090112
  8. OCELLA [Suspect]
     Indication: PRODUCT USED FOR UNKNOWN INDICATION
     Dosage: UNK UNK, UNK
     Route: 048
     Dates: start: 20071001, end: 20091215
  9. TYLOX [OXYCODONE HYDROCHLORIDE,OXYCODONE TEREPHTHALATE,PARACETAMOL] [Concomitant]
     Dosage: UNK UNK, PRN
     Route: 048
     Dates: start: 20080815
  10. ADVIL [IBUPROFEN] [Concomitant]
  11. YAZ [Suspect]
     Indication: ORAL CONTRACEPTION
     Dosage: UNK UNK, QD
     Route: 048
     Dates: start: 20071020, end: 20091215

REACTIONS (9)
  - PAIN [None]
  - DIARRHOEA [None]
  - SCAR [None]
  - EMOTIONAL DISTRESS [None]
  - VAGINAL HAEMORRHAGE [None]
  - CHOLELITHIASIS [None]
  - ABDOMINAL PAIN UPPER [None]
  - ABDOMINAL PAIN [None]
  - FOOD INTOLERANCE [None]
